FAERS Safety Report 10214492 (Version 1)
Quarter: 2014Q2

REPORT INFORMATION
  Report Type: Spontaneous
  Country: US (occurrence: US)
  Receive Date: 20140603
  Receipt Date: 20140603
  Transmission Date: 20141212
  Serious: No
  Sender: FDA-Public Use
  Company Number: US-009507513-1405USA015484

PATIENT
  Age: 10 Month
  Sex: Female
  Weight: 10.43 kg

DRUGS (1)
  1. COPPERTONE WATERBABIES LOTION SPF 30 [Suspect]
     Indication: PROPHYLAXIS AGAINST SOLAR RADIATION
     Dosage: UNK, PRN
     Route: 061
     Dates: start: 20140524, end: 20140524

REACTIONS (2)
  - Ocular hyperaemia [Recovering/Resolving]
  - Accidental exposure to product by child [Unknown]
